FAERS Safety Report 13629950 (Version 1)
Quarter: 2017Q2

REPORT INFORMATION
  Report Type: Spontaneous
  Country: FR (occurrence: FR)
  Receive Date: 20170608
  Receipt Date: 20170608
  Transmission Date: 20170830
  Serious: Yes (Other)
  Sender: FDA-Public Use
  Company Number: FR-BAYER-2017-103420

PATIENT
  Age: 32 Year
  Sex: Female

DRUGS (1)
  1. MIRENA [Suspect]
     Active Substance: LEVONORGESTREL
     Indication: CONTRACEPTION
     Dosage: 20 MCG/24HR, CONT
     Route: 015
     Dates: start: 20151030, end: 20160420

REACTIONS (10)
  - Hypertrichosis [Recovered/Resolved]
  - Aggression [Recovered/Resolved]
  - Visual impairment [Recovered/Resolved]
  - Muscle spasms [Recovered/Resolved]
  - Sciatica [Recovered/Resolved]
  - Fatigue [Recovered/Resolved]
  - Loss of libido [Recovered/Resolved]
  - Abdominal distension [Recovered/Resolved]
  - Depression [Recovered/Resolved]
  - Illness anxiety disorder [Recovered/Resolved]

NARRATIVE: CASE EVENT DATE: 20151115
